FAERS Safety Report 25765977 (Version 1)
Quarter: 2025Q3

REPORT INFORMATION
  Report Type: Spontaneous
  Country: US (occurrence: US)
  Receive Date: 20250905
  Receipt Date: 20250905
  Transmission Date: 20251020
  Serious: No
  Sender: DOMPE FARMACEUTICI
  Company Number: US-FARMAPROD-202407-2662

PATIENT
  Age: 91 Year
  Sex: Female

DRUGS (18)
  1. OXERVATE [Suspect]
     Active Substance: CENEGERMIN-BKBJ
     Indication: Neurotrophic keratopathy
     Route: 047
     Dates: start: 20240213
  2. OXERVATE [Suspect]
     Active Substance: CENEGERMIN-BKBJ
     Route: 047
     Dates: start: 20240621
  3. OXERVATE [Suspect]
     Active Substance: CENEGERMIN-BKBJ
  4. VALACYCLOVIR [Concomitant]
     Active Substance: VALACYCLOVIR HYDROCHLORIDE
  5. TIMOLOL MALEATE [Concomitant]
     Active Substance: TIMOLOL MALEATE
  6. PREDNISOLONE [Concomitant]
     Active Substance: PREDNISOLONE
  7. OXYBUTYNIN CHLORIDE [Concomitant]
     Active Substance: OXYBUTYNIN CHLORIDE
  8. OMEPRAZOLE [Concomitant]
     Active Substance: OMEPRAZOLE
  9. MOXIFLOXACIN [Concomitant]
     Active Substance: MOXIFLOXACIN
  10. METOPROLOL TARTRATE [Concomitant]
     Active Substance: METOPROLOL TARTRATE
  11. LATANOPROST [Concomitant]
     Active Substance: LATANOPROST
  12. HYDROXYUREA [Concomitant]
     Active Substance: HYDROXYUREA
  13. FUROSEMIDE [Concomitant]
     Active Substance: FUROSEMIDE
  14. DILTIAZEM-DEXTROSE [Concomitant]
  15. DIGOXIN [Concomitant]
     Active Substance: DIGOXIN
  16. BENZONATATE [Concomitant]
     Active Substance: BENZONATATE
  17. AMITRIPTYLINE HYDROCHLORIDE [Concomitant]
     Active Substance: AMITRIPTYLINE HYDROCHLORIDE
  18. AMIODARONE HYDROCHLORIDE [Concomitant]
     Active Substance: AMIODARONE HYDROCHLORIDE

REACTIONS (4)
  - Eye pain [Not Recovered/Not Resolved]
  - Product dose omission issue [Unknown]
  - Therapy interrupted [Unknown]
  - Corneal scar [Unknown]

NARRATIVE: CASE EVENT DATE: 20240722
